FAERS Safety Report 5158257-8 (Version None)
Quarter: 2006Q4

REPORT INFORMATION
  Report Type: 
  Country: None (occurrence: None)
  Receive Date: 20061121
  Receipt Date: 20061121
  Transmission Date: 20070319
  Serious: Yes (Other)
  Sender: FDA-Public Use
  Company Number: None

PATIENT
  Age: 33 Year
  Sex: Female
  Weight: 66.2252 kg

DRUGS (3)
  1. WELLBUTRIN SR [Suspect]
     Indication: ATTENTION DEFICIT/HYPERACTIVITY DISORDER
     Dosage: 150 MG 1X DAILY PO
     Route: 048
     Dates: start: 20040901, end: 20041130
  2. WELLBUTRIN SR [Suspect]
     Indication: DEPRESSION
     Dosage: 150 MG 1X DAILY PO
     Route: 048
     Dates: start: 20040901, end: 20041130
  3. WELLBUTRIN XL [Suspect]
     Indication: DEPRESSION
     Dosage: 150 MG 1X DAILY PO
     Route: 048
     Dates: start: 20061001, end: 20061112

REACTIONS (1)
  - ALOPECIA [None]
